FAERS Safety Report 19849331 (Version 1)
Quarter: 2021Q3

REPORT INFORMATION
  Report Type: Spontaneous
  Country: GB (occurrence: GB)
  Receive Date: 20210917
  Receipt Date: 20210917
  Transmission Date: 20211014
  Serious: Yes (Other)
  Sender: FDA-Public Use
  Company Number: GB-TEVA-2021-GB-1953582

PATIENT
  Age: 74 Year
  Sex: Female

DRUGS (6)
  1. LEVOTHYROXINE. [Concomitant]
     Active Substance: LEVOTHYROXINE
     Indication: ILL-DEFINED DISORDER
  2. HYOSCINE [Concomitant]
     Active Substance: SCOPOLAMINE
     Indication: ILL-DEFINED DISORDER
  3. BACLOFEN. [Suspect]
     Active Substance: BACLOFEN
     Indication: ILL-DEFINED DISORDER
     Dosage: 10MG STARTED AT ONE THREE TIMES A DAY FOR A WEEK THEN TWO THREE TIMES A DAY
     Route: 048
     Dates: start: 20210724, end: 20210805
  4. ALENDRONIC ACID [Concomitant]
     Active Substance: ALENDRONIC ACID
     Indication: ILL-DEFINED DISORDER
  5. CALCIUM [Concomitant]
     Active Substance: CALCIUM
     Indication: ILL-DEFINED DISORDER
  6. BACLOFEN. [Suspect]
     Active Substance: BACLOFEN
     Indication: MUSCLE SPASMS

REACTIONS (4)
  - Paraesthesia [Recovering/Resolving]
  - Medication error [Unknown]
  - Hallucination [Recovered/Resolved]
  - Crying [Recovered/Resolved]
